FAERS Safety Report 5480303-2 (Version None)
Quarter: 2007Q3

REPORT INFORMATION
  Report Type: 
  Country: None (occurrence: None)
  Receive Date: 20070913
  Receipt Date: 20061129
  Transmission Date: 20080115
  Serious: Yes (Other)
  Sender: FDA-Public Use
  Company Number: PHEH2006US14549

PATIENT
  Age: 79 Year
  Sex: Female

DRUGS (6)
  1. DIOVAN [Suspect]
     Indication: HYPERTENSION
     Dosage: 80 MG, QD, 160 MG, QD
     Dates: end: 20040924
  2. DIOVAN [Suspect]
     Indication: HYPERTENSION
     Dosage: 80 MG, QD, 160 MG, QD
     Dates: start: 20061101, end: 20061101
  3. DIOVAN [Suspect]
     Indication: HYPERTENSION
     Dosage: 80 MG, QD, 160 MG, QD
     Dates: start: 20061101
  4. PLAVIX [Concomitant]
  5. CARDIZEM [Concomitant]
  6. ZOCOR [Concomitant]

REACTIONS (3)
  - BLOOD POTASSIUM INCREASED [None]
  - COUGH [None]
  - DRUG INEFFECTIVE [None]
